FAERS Safety Report 10173199 (Version 2)
Quarter: 2014Q2

REPORT INFORMATION
  Report Type: Spontaneous
  Country: BR (occurrence: None)
  Receive Date: 20140513
  Receipt Date: 20140516
  Transmission Date: 20141212
  Serious: Yes (Other)
  Sender: FDA-Public Use
  Company Number: VAL_03114_2014

PATIENT
  Age: 48 Year
  Sex: Female

DRUGS (1)
  1. BENAZEPRIL HYDROCHLORIDE [Suspect]
     Indication: PRODUCT USED FOR UNKNOWN INDICATION
     Dosage: 1 DF 1X ORAL UNTIL NOT CONTINUING
     Route: 048

REACTIONS (2)
  - Accidental exposure to product [None]
  - Exposure via ingestion [None]
